FAERS Safety Report 4338517-0 (Version None)
Quarter: 2004Q2

REPORT INFORMATION
  Report Type: 
  Country: None (occurrence: None)
  Receive Date: 20040414
  Receipt Date: 20040407
  Transmission Date: 20050107
  Serious: Yes (Hospitalization)
  Sender: FDA-Public Use
  Company Number: FR-GLAXOSMITHKLINE-B0329486A

PATIENT
  Age: 82 Year
  Sex: Male

DRUGS (10)
  1. AUGMENTIN [Suspect]
     Route: 048
     Dates: start: 20040211, end: 20040211
  2. PERFALGAN [Suspect]
     Route: 042
     Dates: start: 20040211, end: 20040211
  3. BACTRIM [Concomitant]
     Route: 048
     Dates: start: 20040121, end: 20040121
  4. NEURONTIN [Concomitant]
     Route: 048
  5. DEPAKENE [Concomitant]
     Route: 065
  6. REMINYL [Concomitant]
     Indication: DEMENTIA ALZHEIMER'S TYPE
     Route: 048
  7. ODRIK [Concomitant]
     Route: 048
  8. KARDEGIC [Concomitant]
     Route: 048
  9. LOVENOX [Concomitant]
     Route: 058
  10. VIRLIX [Concomitant]
     Indication: URTICARIA
     Route: 048

REACTIONS (1)
  - GENERALISED ERYTHEMA [None]
